FAERS Safety Report 19909626 (Version 1)
Quarter: 2021Q4

REPORT INFORMATION
  Report Type: Spontaneous
  Country: CN (occurrence: CN)
  Receive Date: 20211001
  Receipt Date: 20211001
  Transmission Date: 20220303
  Serious: Yes (Hospitalization)
  Sender: FDA-Public Use
  Company Number: CN-BAXTER-2021BAX026810

PATIENT
  Age: 67 Year
  Sex: Male
  Weight: 69.1 kg

DRUGS (12)
  1. CYCLOPHOSPHAMIDE [Suspect]
     Active Substance: CYCLOPHOSPHAMIDE
     Indication: Lymphoma
     Dosage: CYCLOPHOSPHAMIDE FOR INJECTION (800MG) + 0.9% SODIUM CHLORIDE INJECTION (250ML)
     Route: 041
     Dates: start: 20200304, end: 20200304
  2. CYCLOPHOSPHAMIDE [Suspect]
     Active Substance: CYCLOPHOSPHAMIDE
     Dosage: DOSE RE-INTRODUCED, CYCLOPHOSPHAMIDE FOR INJECTION+ 0.9% SODIUM CHLORIDE INJECTION
     Route: 041
  3. SODIUM CHLORIDE [Suspect]
     Active Substance: SODIUM CHLORIDE
     Indication: Medication dilution
     Dosage: CYCLOPHOSPHAMIDE FOR INJECTION 800 MG + 0.9% SODIUM CHLORIDE INJECTION 250ML
     Route: 041
     Dates: start: 20200304, end: 20200304
  4. SODIUM CHLORIDE [Suspect]
     Active Substance: SODIUM CHLORIDE
     Dosage: RITUXIMAB INJECTION 600 MG + 0.9% SODIUM CHLORIDE INJECTION 750ML
     Route: 041
     Dates: start: 20200304, end: 20200304
  5. SODIUM CHLORIDE [Suspect]
     Active Substance: SODIUM CHLORIDE
     Dosage: DOSE RE-INTRODUCED, CYCLOPHOSPHAMIDE FOR INJECTION+ 0.9% SODIUM CHLORIDE INJECTION
     Route: 041
  6. SODIUM CHLORIDE [Suspect]
     Active Substance: SODIUM CHLORIDE
     Dosage: RITUXIMAB INJECTION+ 0.9% SODIUM CHLORIDE INJECTION
     Route: 041
  7. DEXTROSE [Suspect]
     Active Substance: DEXTROSE
     Indication: Medication dilution
     Dosage: PIRARUBICIN HYDROCHLORIDE FOR INJECTION 50MG + 5% GLUCOSE INJECTION 500ML
     Route: 041
     Dates: start: 20200304, end: 20200304
  8. DEXTROSE [Suspect]
     Active Substance: DEXTROSE
     Dosage: DOSE RE-INTRODUCED, PIRARUBICIN HYDROCHLORIDE FOR INJECTION+ 5% GLUCOSE INJECTION
     Route: 041
  9. RITUXIMAB [Suspect]
     Active Substance: RITUXIMAB
     Indication: Lymphoma
     Dosage: RITUXIMAB INJECTION 600 MG + 0.9% SODIUM CHLORIDE INJECTION 750ML
     Route: 041
     Dates: start: 20200304, end: 20200304
  10. RITUXIMAB [Suspect]
     Active Substance: RITUXIMAB
     Dosage: DOSE REINTRODUCED, RITUXIMAB INJECTION+ 0.9% SODIUM CHLORIDE INJECTION
     Route: 041
  11. PIRARUBICIN HYDROCHLORIDE [Suspect]
     Active Substance: PIRARUBICIN HYDROCHLORIDE
     Indication: Lymphoma
     Dosage: PIRARUBICIN HYDROCHLORIDE FOR INJECTION 50MG + 5% GLUCOSE INJECTION 500ML
     Route: 041
     Dates: start: 20200304, end: 20200304
  12. PIRARUBICIN HYDROCHLORIDE [Suspect]
     Active Substance: PIRARUBICIN HYDROCHLORIDE
     Dosage: DOSE RE-INTRODUCED, PIRARUBICIN HYDROCHLORIDE FOR INJECTION+ 5% GLUCOSE INJECTION
     Route: 041

REACTIONS (1)
  - Granulocytopenia [Recovering/Resolving]

NARRATIVE: CASE EVENT DATE: 20200323
